FAERS Safety Report 15207932 (Version 1)
Quarter: 2018Q3

REPORT INFORMATION
  Report Type: Spontaneous
  Country: DK (occurrence: DK)
  Receive Date: 20180727
  Receipt Date: 20180727
  Transmission Date: 20181010
  Serious: Yes (Hospitalization)
  Sender: FDA-Public Use
  Company Number: DK-TEVA-2018-DK-930429

PATIENT
  Age: 75 Year
  Sex: Male

DRUGS (17)
  1. BICALUTAMIDE ^TEVA^ [Suspect]
     Active Substance: BICALUTAMIDE
     Indication: PROSTATE CANCER
     Dosage: 75 MILLIGRAM DAILY;
     Route: 048
     Dates: start: 201712
  2. FURIX [Concomitant]
     Active Substance: FUROSEMIDE
     Indication: DIURETIC THERAPY
     Dosage: DOSE: 0.5 TABLETS IF NEEDED.
     Route: 048
  3. MAREVAN [Concomitant]
     Active Substance: WARFARIN SODIUM
     Indication: THROMBOSIS PROPHYLAXIS
     Dosage: DOSE: DOSING ACCORDING TO SCHEDULE
     Route: 048
  4. IMOCLONE [Concomitant]
     Active Substance: ZOPICLONE
     Indication: INSOMNIA
     Dosage: DOSE: 1 TABLET TO NIGHT WHEN NEEDED. MAX. 1 TABLET PER DAY.
     Route: 048
  5. UNIKALK BASIC [Concomitant]
     Indication: MINERAL SUPPLEMENTATION
     Dosage: 800 MILLIGRAM DAILY;
     Route: 048
     Dates: start: 20180124
  6. IRON [Concomitant]
     Active Substance: IRON
     Indication: IRON DEFICIENCY
     Dosage: 200 MILLIGRAM DAILY;
     Route: 048
     Dates: start: 20131206
  7. EZETROL [Concomitant]
     Active Substance: EZETIMIBE
     Indication: HYPERCHOLESTEROLAEMIA
     Dosage: 10 MILLIGRAM DAILY;
     Route: 048
     Dates: start: 20150922
  8. ADPORT [Interacting]
     Active Substance: TACROLIMUS
     Indication: KIDNEY TRANSPLANT REJECTION
     Dosage: 4 MILLIGRAM DAILY;
     Route: 048
     Dates: start: 201608
  9. VITAMIN D [Concomitant]
     Active Substance: CHOLECALCIFEROL
     Indication: VITAMIN D DEFICIENCY
     Dosage: 2800 IU (INTERNATIONAL UNIT) DAILY;
     Route: 048
     Dates: start: 20151127
  10. MIMPARA [Concomitant]
     Active Substance: CINACALCET HYDROCHLORIDE
     Indication: PARATHYROID DISORDER
     Route: 048
  11. KALEORID [Concomitant]
     Active Substance: POTASSIUM CHLORIDE
     Indication: MINERAL SUPPLEMENTATION
     Dosage: 1500 MILLIGRAM DAILY;
     Route: 048
  12. LAXOBERAL [Concomitant]
     Active Substance: SODIUM PICOSULFATE
     Indication: CONSTIPATION
     Dosage: 15 DOSAGE FORMS DAILY;
     Route: 048
     Dates: start: 2016
  13. PAMOL [Concomitant]
     Active Substance: ACETAMINOPHEN
     Indication: PAIN
     Dosage: DOSE: 2 TABLETS IF NEEDED. MAX. 8 TABLETS PER DAY
     Route: 048
     Dates: start: 20160223
  14. ZYCLARA [Concomitant]
     Active Substance: IMIQUIMOD
     Indication: ACTINIC KERATOSIS
     Dosage: 1 DOSAGE FORMS DAILY; DOSE: DAILY FOR 14 DAYS, THEN 14 DAYS BREAK AND REPEAT. STRENGTH: 3.75%.
     Route: 003
     Dates: start: 20161118
  15. MYFENAX [Concomitant]
     Active Substance: MYCOPHENOLATE MOFETIL
     Indication: IMMUNOSUPPRESSION
     Dosage: 500 MILLIGRAM DAILY;
     Route: 048
     Dates: start: 20161103
  16. KININ ^COPYPHARM^ [Concomitant]
     Indication: MUSCLE SPASMS
     Dosage: 100 MILLIGRAM DAILY;
     Route: 048
     Dates: start: 20160329
  17. ARANESP [Concomitant]
     Active Substance: DARBEPOETIN ALFA
     Indication: ANAEMIA
     Route: 065

REACTIONS (5)
  - Toxicity to various agents [Unknown]
  - Drug level increased [Not Recovered/Not Resolved]
  - Blood creatinine increased [Unknown]
  - Renal impairment [Unknown]
  - Drug interaction [Not Recovered/Not Resolved]

NARRATIVE: CASE EVENT DATE: 201712
